FAERS Safety Report 9334563 (Version 1)
Quarter: 2013Q2

REPORT INFORMATION
  Report Type: Spontaneous
  Country: US (occurrence: US)
  Receive Date: 20130606
  Receipt Date: 20130606
  Transmission Date: 20140414
  Serious: No
  Sender: FDA-Public Use
  Company Number: US-AMGEN-USASP2013030691

PATIENT
  Age: 94 Year
  Sex: Female

DRUGS (17)
  1. PROLIA [Suspect]
     Indication: OSTEOPOROSIS
     Dosage: UNK
     Dates: start: 201210
  2. PREDNISOLONE [Concomitant]
  3. LEVOTHYROXINE [Concomitant]
     Dosage: 75 MUG, QD
  4. DIGOXIN [Concomitant]
     Dosage: 125 MUG, UNK
  5. LOSARTAN [Concomitant]
     Dosage: 25 MG, QD
  6. FUROSEMIDE [Concomitant]
     Dosage: 40 MG, QD
  7. CARVEDILOL [Concomitant]
     Dosage: 25 MG, UNK
  8. CALCIUM [Concomitant]
     Dosage: 600 MG, QD
  9. VITAMIN D                          /00107901/ [Concomitant]
  10. GLUCOSAMINE CHONDROITIN            /01430901/ [Concomitant]
     Dosage: UNK UNK, QD
  11. MULTIVITAMIN AND MINERAL [Concomitant]
     Dosage: UNK UNK, QD
  12. JANTOVEN [Concomitant]
     Dosage: UNK UNK, QD
  13. PRESERVISION [Concomitant]
     Dosage: UNK UNK, QD
  14. OMEGA 3 FISH OIL [Concomitant]
     Dosage: 1000 MG, QD
  15. MIRALAX                            /00754501/ [Concomitant]
     Dosage: ONE TABLESPOON
  16. LATANOPROST [Concomitant]
     Dosage: UNK UNK, QD
     Route: 047
  17. ERYTHROMYCIN [Concomitant]
     Route: 047

REACTIONS (2)
  - Tooth fracture [Unknown]
  - C-telopeptide [Unknown]
